FAERS Safety Report 9363890 (Version 1)
Quarter: 2013Q2

REPORT INFORMATION
  Report Type: Spontaneous
  Country: FR (occurrence: FR)
  Receive Date: 20130624
  Receipt Date: 20130624
  Transmission Date: 20140414
  Serious: Yes (Hospitalization)
  Sender: FDA-Public Use
  Company Number: FR-009507513-1306FRA007228

PATIENT
  Age: 81 Year
  Sex: Female

DRUGS (5)
  1. FOSAVANCE [Suspect]
     Dosage: UNK
     Route: 048
  2. PREVISCAN [Suspect]
     Indication: ATRIAL FIBRILLATION
     Dosage: 15 MG, QD
     Route: 048
     Dates: end: 20071119
  3. CELEBREX [Suspect]
     Dosage: UNK
     Route: 048
  4. LASILIX [Suspect]
     Dosage: 40 MG, QD
     Route: 048
  5. LASILIX [Suspect]
     Dosage: 80 MG, QD
     Route: 048

REACTIONS (4)
  - Anaemia [Not Recovered/Not Resolved]
  - Contusion [Recovering/Resolving]
  - Haematoma [Recovering/Resolving]
  - Subcutaneous haematoma [Recovering/Resolving]
